FAERS Safety Report 4323083-6 (Version None)
Quarter: 2004Q1

REPORT INFORMATION
  Report Type: 
  Country: None (occurrence: None)
  Receive Date: 20040322
  Receipt Date: 20040309
  Transmission Date: 20041129
  Serious: Yes (Hospitalization, Other)
  Sender: FDA-Public Use
  Company Number: NSADSS2002013623

PATIENT
  Age: 50 Year
  Sex: Male
  Weight: 90.7194 kg

DRUGS (1)
  1. REMICADE [Suspect]
     Indication: CROHN'S DISEASE
     Dosage: 1 IN 1 AS NECESSARY, INTRAVENOUS DRIP (SEE IMAGE)
     Route: 041
     Dates: start: 20000401, end: 20000401

REACTIONS (4)
  - BREAST PAIN [None]
  - DRUG DEPENDENCE [None]
  - LIVER DISORDER [None]
  - LYMPHADENOPATHY [None]
